FAERS Safety Report 9606438 (Version 2)
Quarter: 2013Q4

REPORT INFORMATION
  Report Type: Spontaneous
  Country: US (occurrence: US)
  Receive Date: 20131008
  Receipt Date: 20131008
  Transmission Date: 20140711
  Serious: No
  Sender: FDA-Public Use
  Company Number: US-AMGEN-USASP2013045359

PATIENT
  Age: 82 Year
  Sex: Female

DRUGS (10)
  1. PROLIA [Suspect]
     Indication: OSTEOPENIA
     Dosage: UNK
     Dates: start: 201207
  2. METOPROLOL [Concomitant]
  3. NIFEDIPINE [Concomitant]
  4. MULTIVITAMIN                       /00097801/ [Concomitant]
  5. VITAMIN C                          /00008001/ [Concomitant]
  6. BIOTIN [Concomitant]
  7. MULTIVITAMIN                       /00097801/ [Concomitant]
  8. VITAMIN C                          /00008001/ [Concomitant]
  9. TUMS                               /00193601/ [Concomitant]
     Dosage: UNK UNK, BID
  10. STOOL SOFTENER [Concomitant]
     Dosage: UNK UNK, QD

REACTIONS (5)
  - Dental plaque [Unknown]
  - Pain in jaw [Recovering/Resolving]
  - Gingival pain [Recovering/Resolving]
  - Arthralgia [Unknown]
  - Pain in extremity [Not Recovered/Not Resolved]
